FAERS Safety Report 14057536 (Version 6)
Quarter: 2018Q1

REPORT INFORMATION
  Report Type: Report from Study
  Country: CA (occurrence: CA)
  Receive Date: 20171006
  Receipt Date: 20180314
  Transmission Date: 20180508
  Serious: Yes (Hospitalization, Other)
  Sender: FDA-Public Use
  Company Number: CA-BRISTOL-MYERS SQUIBB COMPANY-BMS-2017-088197

PATIENT
  Age: 75 Year
  Sex: Female

DRUGS (1)
  1. ABATACEPT [Suspect]
     Active Substance: ABATACEPT
     Indication: RHEUMATOID ARTHRITIS
     Dosage: 750 MG, Q4WK
     Route: 042
     Dates: start: 20131119

REACTIONS (8)
  - Hypertension [Unknown]
  - Abdominal pain [Recovering/Resolving]
  - Upper respiratory tract infection [Not Recovered/Not Resolved]
  - Head discomfort [Unknown]
  - Diplopia [Unknown]
  - Sinusitis [Recovering/Resolving]
  - Back pain [Unknown]
  - Bronchitis [Unknown]

NARRATIVE: CASE EVENT DATE: 20170924
